FAERS Safety Report 9661160 (Version 1)
Quarter: 2013Q4

REPORT INFORMATION
  Report Type: Report from Study
  Country: BR (occurrence: BR)
  Receive Date: 20131031
  Receipt Date: 20131031
  Transmission Date: 20140711
  Serious: Yes (Other)
  Sender: FDA-Public Use
  Company Number: BR-ROCHE-1293864

PATIENT
  Age: 56 Year
  Sex: Female
  Weight: 81 kg

DRUGS (6)
  1. INTERFERON ALFA-2A [Suspect]
     Indication: CHRONIC HEPATITIS C
     Route: 065
     Dates: start: 20060924
  2. RIBAVIRIN [Suspect]
     Indication: CHRONIC HEPATITIS C
     Route: 065
     Dates: start: 20060924
  3. RIBAVIRIN [Suspect]
     Route: 065
     Dates: start: 20080801
  4. RIBAVIRIN [Suspect]
     Route: 065
     Dates: start: 20091002
  5. PEGINTERFERON ALFA-2B [Suspect]
     Indication: CHRONIC HEPATITIS C
     Route: 065
     Dates: start: 20080801
  6. PEG-INTERFERON ALFA 2A [Concomitant]
     Route: 065
     Dates: start: 20091002

REACTIONS (2)
  - No therapeutic response [Unknown]
  - Hepatitis C [Unknown]
